FAERS Safety Report 17606663 (Version 1)
Quarter: 2020Q1

REPORT INFORMATION
  Report Type: Report from Study
  Country: US (occurrence: US)
  Receive Date: 20200331
  Receipt Date: 20200331
  Transmission Date: 20200409
  Serious: Yes (Hospitalization)
  Sender: FDA-Public Use
  Company Number: US-GILEAD-2020-0457233

PATIENT
  Age: 41 Year
  Sex: Male

DRUGS (17)
  1. TRAMADOL. [Concomitant]
     Active Substance: TRAMADOL
  2. AZITHROMYCIN ANHYDROUS. [Concomitant]
     Active Substance: AZITHROMYCIN ANHYDROUS
  3. PREDNISONE. [Concomitant]
     Active Substance: PREDNISONE
  4. POSACONAZOLE [Concomitant]
     Active Substance: POSACONAZOLE
  5. VALGANCICLOVIR. [Concomitant]
     Active Substance: VALGANCICLOVIR
  6. ACETAMINOPHEN. [Concomitant]
     Active Substance: ACETAMINOPHEN
  7. OMEPRAZOLE. [Concomitant]
     Active Substance: OMEPRAZOLE
  8. ATOVAQUONE. [Concomitant]
     Active Substance: ATOVAQUONE
  9. METOPROLOL. [Concomitant]
     Active Substance: METOPROLOL
  10. PRAVASTATIN. [Concomitant]
     Active Substance: PRAVASTATIN
  11. AZTREONAM LYSINE [Suspect]
     Active Substance: AZTREONAM LYSINE
     Indication: CYSTIC FIBROSIS
     Dosage: 75 MG, TID
     Route: 065
     Dates: start: 20191017
  12. FEROSUL [Concomitant]
     Active Substance: FERROUS SULFATE
  13. ESCITALOPRAM [Concomitant]
     Active Substance: ESCITALOPRAM OXALATE
  14. LEVETIRACETAM. [Concomitant]
     Active Substance: LEVETIRACETAM
  15. CEFDINIR. [Concomitant]
     Active Substance: CEFDINIR
  16. TACROLIMUS. [Concomitant]
     Active Substance: TACROLIMUS
  17. WARFARIN [Concomitant]
     Active Substance: WARFARIN

REACTIONS (2)
  - Respiratory tract infection [Not Recovered/Not Resolved]
  - Lung disorder [Not Recovered/Not Resolved]
